FAERS Safety Report 9172811 (Version 1)
Quarter: 2012Q4

REPORT INFORMATION
  Report Type: 
  Country: IR (occurrence: IR)
  Receive Date: 20120911
  Receipt Date: 20120911
  Transmission Date: 20130627
  Serious: Yes (Other)
  Sender: FDA-Public Use
  Company Number: IR-ROCHE-1115540

PATIENT

DRUGS (11)
  1. ZENAPAX [Suspect]
     Indication: GRAFT VERSUS HOST DISEASE
     Route: 042
  2. ATGAM [Suspect]
     Indication: PROPHYLAXIS AGAINST GRAFT VERSUS HOST DISEASE
  3. THYMOGLOBULIN [Suspect]
     Indication: PROPHYLAXIS AGAINST GRAFT VERSUS HOST DISEASE
  4. METHYLPREDNISOLONE [Concomitant]
     Indication: PROPHYLAXIS AGAINST GRAFT VERSUS HOST DISEASE
     Route: 042
  5. METHYLPREDNISOLONE [Concomitant]
     Route: 042
  6. CYCLOSPORINE [Concomitant]
     Indication: PROPHYLAXIS AGAINST GRAFT VERSUS HOST DISEASE
     Dosage: On day 1
     Route: 042
  7. CYCLOSPORINE [Concomitant]
     Dosage: From day 7
     Route: 042
  8. METHOTREXATE [Concomitant]
     Indication: PROPHYLAXIS AGAINST GRAFT VERSUS HOST DISEASE
     Dosage: on day 1
     Route: 065
  9. METHOTREXATE [Concomitant]
     Dosage: on days 3, 6, and 11
     Route: 065
  10. BUSULFAN [Concomitant]
  11. MELPHALAN [Concomitant]

REACTIONS (5)
  - Guillain-Barre syndrome [Unknown]
  - Convulsion [Unknown]
  - Fungal infection [Unknown]
  - Cytomegalovirus infection [Unknown]
  - Bacterial infection [Unknown]
